FAERS Safety Report 5419739-4 (Version None)
Quarter: 2007Q3

REPORT INFORMATION
  Report Type: 
  Country: None (occurrence: None)
  Receive Date: 20070820
  Receipt Date: 20070809
  Transmission Date: 20080115
  Serious: Yes (Life-Threatening, Hospitalization)
  Sender: FDA-Public Use
  Company Number: SE-AMGEN-US112029

PATIENT
  Sex: Male

DRUGS (9)
  1. ENBREL [Suspect]
     Indication: RHEUMATOID ARTHRITIS
     Dosage: DOSE AND FREQUENCY UNKNOWN
     Dates: start: 19990701, end: 19991216
  2. OMEPRAZOLE [Concomitant]
  3. EPOGEN [Concomitant]
  4. CALCIUM CHLORIDE [Concomitant]
  5. DEXAMETHASONE 0.5MG TAB [Concomitant]
  6. NANDROLONE DECANOATE [Concomitant]
  7. IRON SORBITEX [Concomitant]
  8. METHOTREXATE [Concomitant]
     Dates: start: 19990101, end: 19991216
  9. CARMELLOSE [Concomitant]

REACTIONS (1)
  - ENCEPHALITIS [None]
